FAERS Safety Report 4983087-7 (Version None)
Quarter: 2006Q2

REPORT INFORMATION
  Report Type: 
  Country: None (occurrence: None)
  Receive Date: 20060420
  Receipt Date: 20060411
  Transmission Date: 20061013
  Serious: Yes (Hospitalization, Other)
  Sender: FDA-Public Use
  Company Number: 2006039315

PATIENT
  Age: 83 Year
  Sex: Female

DRUGS (2)
  1. NORVASC [Suspect]
     Indication: HYPERTENSION
     Dosage: 10 MG
  2. LOTREL [Concomitant]

REACTIONS (5)
  - COUGH [None]
  - FATIGUE [None]
  - HYPERTENSION [None]
  - RECTAL PROLAPSE [None]
  - SLUGGISHNESS [None]
